FAERS Safety Report 24759178 (Version 1)
Quarter: 2024Q4

REPORT INFORMATION
  Report Type: Spontaneous
  Country: US (occurrence: US)
  Receive Date: 20241220
  Receipt Date: 20241220
  Transmission Date: 20250114
  Serious: No
  Sender: BRAEBURN PHARMACEUTICALS
  Company Number: US-BRAEBURN-US-BRA-24-000834

PATIENT
  Sex: Female

DRUGS (3)
  1. BRIXADI [Suspect]
     Active Substance: BUPRENORPHINE
     Indication: Product used for unknown indication
     Dosage: 24 MILLIGRAM, WEEKLY
     Route: 058
     Dates: start: 20240517
  2. BRIXADI [Suspect]
     Active Substance: BUPRENORPHINE
     Dosage: 32 MILLIGRAM, WEEKLY
     Route: 058
     Dates: start: 20240701
  3. BRIXADI [Suspect]
     Active Substance: BUPRENORPHINE
     Dosage: UNK, MONTHLY
     Route: 058

REACTIONS (1)
  - Injection site mass [Recovering/Resolving]
